FAERS Safety Report 5038918-1 (Version None)
Quarter: 2006Q2

REPORT INFORMATION
  Report Type: 
  Country: None (occurrence: None)
  Receive Date: 20060627
  Receipt Date: 20060627
  Transmission Date: 20061013
  Serious: Yes (Hospitalization)
  Sender: FDA-Public Use
  Company Number: None

PATIENT
  Age: 79 Year
  Sex: Female
  Weight: 75 kg

DRUGS (6)
  1. OXALIPLATIN 130 MG/M2 IV DAY 1 Q3 WKS [Suspect]
     Indication: METASTATIC NEOPLASM
     Dosage: 243 MG IV
     Route: 042
     Dates: start: 20060615
  2. CAPECITABINE 1500 MG/M2 PO X14 DAYS [Suspect]
     Dosage: 1500 MG PO BID
     Route: 048
     Dates: start: 20060615
  3. DILATIN [Concomitant]
  4. DIAZEPAM [Concomitant]
  5. ASPIRIN [Concomitant]
  6. PROTONIX [Concomitant]

REACTIONS (2)
  - CATHETER RELATED INFECTION [None]
  - DEEP VEIN THROMBOSIS [None]
